FAERS Safety Report 8925464 (Version 1)
Quarter: 2012Q4

REPORT INFORMATION
  Report Type: Spontaneous
  Country: US (occurrence: None)
  Receive Date: 20121126
  Receipt Date: 20121126
  Transmission Date: 20130627
  Serious: Yes (Hospitalization)
  Sender: FDA-Public Use
  Company Number: None

PATIENT
  Age: 69 Year
  Sex: Female
  Weight: 62.37 kg

DRUGS (11)
  1. DIPHENHYDRAMINE 25MG [Suspect]
     Indication: FLU VACCINATION
     Dosage: 25mg q6 hours x 48 hrs po
     Route: 048
     Dates: start: 20121011, end: 20121013
  2. APAP [Concomitant]
  3. LEVOTHYROXINE [Concomitant]
  4. MILK OF MAG. [Concomitant]
  5. MVI W/MINERALS [Concomitant]
  6. VIT D3 [Concomitant]
  7. PHENYTOIN [Concomitant]
  8. MIRALAX [Concomitant]
  9. SIMETHICONE [Concomitant]
  10. BISACODYL SUPP [Concomitant]
  11. LATANOPROST [Concomitant]

REACTIONS (3)
  - Colonic pseudo-obstruction [None]
  - Megacolon [None]
  - Constipation [None]
